FAERS Safety Report 12472416 (Version 1)
Quarter: 2016Q2

REPORT INFORMATION
  Report Type: Spontaneous
  Country: US (occurrence: US)
  Receive Date: 20160616
  Receipt Date: 20160616
  Transmission Date: 20160815
  Serious: No
  Sender: FDA-Public Use
  Company Number: US-ALLERGAN-1649174

PATIENT
  Age: 52 Year
  Sex: Female

DRUGS (8)
  1. DIAZOXIDE [Suspect]
     Active Substance: DIAZOXIDE
     Indication: ALOPECIA AREATA
     Dosage: 0.2 %, AS DIRECTED, APPLY TO SCALP TWICE DAILY
     Route: 061
     Dates: start: 201510, end: 20151201
  2. PREGNENOLONE [Suspect]
     Active Substance: PREGNENOLONE
     Indication: ALOPECIA AREATA
     Dosage: 0.5 %, AS DIRECTED, APPLY TO SCALP TWICE DAILY
     Route: 061
     Dates: start: 201510, end: 20151201
  3. CANRENONE [Suspect]
     Active Substance: CANRENONE
     Indication: ALOPECIA AREATA
     Dosage: 0.5 %, AS DIRECTED, APPLY TO SCALP TWICE DAILY
     Route: 061
     Dates: start: 201510, end: 20151201
  4. PROGESTERONE UNKNOWN PRODUCT [Suspect]
     Active Substance: PROGESTERONE
     Indication: ALOPECIA AREATA
     Dosage: 0.25 %, AS DIRECTED, APPLY TO SCALP TWICE DAILY
     Route: 061
     Dates: start: 201510, end: 20151201
  5. HYDROXYPROGESTERONE [Suspect]
     Active Substance: HYDROXYPROGESTERONE
     Indication: ALOPECIA AREATA
     Dosage: 0.5 %, AS DIRECTED, APPLY TO SCALP TWICE DAILY
     Route: 061
     Dates: start: 201510, end: 20151201
  6. MINOXIDIL (AMALLC) [Suspect]
     Active Substance: MINOXIDIL
     Indication: ALOPECIA AREATA
     Dosage: AS DIRECTED, APPLY TO SCALP TWICE DAILY
     Route: 061
     Dates: start: 201510, end: 20151201
  7. DUTASTERIDE. [Suspect]
     Active Substance: DUTASTERIDE
     Indication: ALOPECIA AREATA
     Dosage: 0.5%, AS DIRECTED, APPLY TO SCALP TWICE DAILY
     Route: 061
     Dates: start: 201510, end: 20151201
  8. ROSMARINUS OFFICINALIS [Suspect]
     Active Substance: ROSEMARY
     Indication: ALOPECIA AREATA
     Dosage: AS DIRECTED, APPLY TO SCALP TWICE DAILY
     Route: 061
     Dates: start: 201510, end: 20151201

REACTIONS (3)
  - Hair growth abnormal [Not Recovered/Not Resolved]
  - Drug prescribing error [Unknown]
  - Product use issue [None]

NARRATIVE: CASE EVENT DATE: 201510
